FAERS Safety Report 6850683-1 (Version None)
Quarter: 2010Q3

REPORT INFORMATION
  Report Type: 
  Country: None (occurrence: None)
  Receive Date: 20100716
  Receipt Date: 20071021
  Transmission Date: 20110219
  Serious: No
  Sender: FDA-Public Use
  Company Number: US-PFIZER INC-2007090536

PATIENT
  Sex: Female
  Weight: 59.09 kg

DRUGS (3)
  1. CHANTIX [Suspect]
     Indication: SMOKING CESSATION THERAPY
     Dates: start: 20071014
  2. SUDAFED 12 HOUR [Concomitant]
  3. PREMARIN [Concomitant]

REACTIONS (2)
  - DIARRHOEA [None]
  - VOMITING [None]
